FAERS Safety Report 13020819 (Version 1)
Quarter: 2016Q4

REPORT INFORMATION
  Report Type: Spontaneous
  Country: US (occurrence: US)
  Receive Date: 20161212
  Receipt Date: 20161212
  Transmission Date: 20170207
  Serious: No
  Sender: FDA-Public Use
  Company Number: None

PATIENT
  Age: 33 Year
  Sex: Male
  Weight: 148.3 kg

DRUGS (1)
  1. PROCHLORPERAZINE. [Suspect]
     Active Substance: PROCHLORPERAZINE
     Route: 042
     Dates: start: 20160909, end: 20160909

REACTIONS (5)
  - Feeling jittery [None]
  - Dyspnoea [None]
  - Irritability [None]
  - Headache [None]
  - Extrapyramidal disorder [None]

NARRATIVE: CASE EVENT DATE: 20160909
